FAERS Safety Report 22356630 (Version 1)
Quarter: 2023Q2

REPORT INFORMATION
  Report Type: Spontaneous
  Country: GB (occurrence: GB)
  Receive Date: 20230523
  Receipt Date: 20230523
  Transmission Date: 20230722
  Serious: Yes (Hospitalization)
  Sender: FDA-Public Use
  Company Number: GB-MYLANLABS-2023M1045094

PATIENT
  Age: 44 Year
  Sex: Female

DRUGS (7)
  1. CLOZARIL [Suspect]
     Active Substance: CLOZAPINE
     Indication: Schizophrenia
     Dosage: 250 MILLIGRAM, QD (ONCE DAILY NOCTE)
     Route: 048
     Dates: start: 20140519
  2. AMOXICILLIN\CLAVULANATE POTASSIUM [Concomitant]
     Active Substance: AMOXICILLIN\CLAVULANATE POTASSIUM
     Indication: Pneumonia
     Dosage: 625 MILLIGRAM, TID
     Route: 048
     Dates: start: 20230219
  3. LAMOTRIGINE [Concomitant]
     Active Substance: LAMOTRIGINE
     Dosage: 200 MILLIGRAM, QD
     Route: 048
  4. DIAZEPAM [Concomitant]
     Active Substance: DIAZEPAM
     Dosage: 5 MILLIGRAM, QD
     Route: 048
  5. ARIPIPRAZOLE [Concomitant]
     Active Substance: ARIPIPRAZOLE
     Dosage: 5 MILLIGRAM, QD
     Route: 048
  6. FLUOXETINE [Concomitant]
     Active Substance: FLUOXETINE HYDROCHLORIDE
     Dosage: 60 MILLIGRAM, QD
     Route: 048
  7. METFORMIN [Concomitant]
     Active Substance: METFORMIN HYDROCHLORIDE
     Indication: Type 2 diabetes mellitus
     Dosage: 500 MICROGRAM, BID
     Route: 048

REACTIONS (2)
  - Leukocytosis [Recovered/Resolved]
  - Neutrophilia [Recovered/Resolved]

NARRATIVE: CASE EVENT DATE: 20230220
